FAERS Safety Report 7411678-2 (Version None)
Quarter: 2011Q2

REPORT INFORMATION
  Report Type: 
  Country: None (occurrence: None)
  Receive Date: 20110413
  Receipt Date: 20101101
  Transmission Date: 20111010
  Serious: No
  Sender: FDA-Public Use
  Company Number: US-BRISTOL-MYERS SQUIBB COMPANY-15365877

PATIENT
  Age: 60 Year
  Sex: Female

DRUGS (2)
  1. IRINOTECAN [Concomitant]
     Indication: COLORECTAL CANCER METASTATIC
  2. ERBITUX [Suspect]
     Indication: COLORECTAL CANCER METASTATIC
     Route: 042

REACTIONS (1)
  - PRURITUS [None]
